FAERS Safety Report 20515266 (Version 2)
Quarter: 2024Q2

REPORT INFORMATION
  Report Type: Report from Study
  Country: PT (occurrence: PT)
  Receive Date: 20220224
  Receipt Date: 20240430
  Transmission Date: 20240716
  Serious: Yes (Other)
  Sender: FDA-Public Use
  Company Number: None

PATIENT
  Age: 67 Year
  Sex: Male
  Weight: 61 kg

DRUGS (13)
  1. VELTASSA [Suspect]
     Active Substance: PATIROMER
     Indication: Hyperkalaemia
     Route: 048
     Dates: start: 20211213, end: 20220406
  2. EMPAGLIFLOZIN [Concomitant]
     Active Substance: EMPAGLIFLOZIN
  3. BACLOFEN [Concomitant]
     Active Substance: BACLOFEN
     Indication: Alcohol abuse
  4. SENE [Concomitant]
     Dosage: 1 CP
  5. FUROSEMIDE [Concomitant]
     Active Substance: FUROSEMIDE
  6. SIMVASTATIN [Concomitant]
     Active Substance: SIMVASTATIN
  7. BISOPROLOL [Concomitant]
     Active Substance: BISOPROLOL\BISOPROLOL FUMARATE
  8. ALENDRONIC ACID [Concomitant]
     Active Substance: ALENDRONIC ACID
  9. RAMIPRIL [Concomitant]
     Active Substance: RAMIPRIL
  10. NEUROBION [Concomitant]
     Active Substance: CYANOCOBALAMIN\PYRIDOXINE\THIAMINE
     Dosage: 1CP
  11. INSULIN GLARGINE [Concomitant]
     Active Substance: INSULIN GLARGINE
     Dosage: 10 U
  12. DIGOXIN [Concomitant]
     Active Substance: DIGOXIN
  13. EDOXABANO [Concomitant]

REACTIONS (3)
  - Metabolic acidosis [Unknown]
  - Metabolic acidosis [Unknown]
  - Metabolic acidosis [Unknown]

NARRATIVE: CASE EVENT DATE: 20220124
